FAERS Safety Report 4864704-9 (Version None)
Quarter: 2005Q4

REPORT INFORMATION
  Report Type: 
  Country: None (occurrence: None)
  Receive Date: 20051222
  Receipt Date: 20050218
  Transmission Date: 20060501
  Serious: Yes (Hospitalization, Disabling)
  Sender: FDA-Public Use
  Company Number: US-MERCK-0502USA02884

PATIENT
  Age: 47 Year
  Sex: Female
  Weight: 64 kg

DRUGS (19)
  1. VIOXX [Suspect]
     Indication: ARTHRITIS
     Route: 048
     Dates: start: 19990901, end: 20040901
  2. CYCLOBENZAPRINE HYDROCHLORIDE [Concomitant]
     Route: 065
  3. LISINOPRIL [Concomitant]
     Route: 065
  4. METOPROLOL [Concomitant]
     Route: 065
  5. WARFARIN [Concomitant]
     Route: 065
  6. PROMETHAZINE [Concomitant]
     Route: 065
  7. CIMETIDINE [Concomitant]
     Route: 065
  8. PERMETHRIN [Concomitant]
     Route: 065
  9. METHYLPREDNISOLONE [Concomitant]
     Route: 065
  10. CIPRO [Concomitant]
     Route: 065
  11. DIPHENHYDRAMINE HYDROCHLORIDE [Concomitant]
     Route: 065
  12. METOCLOPRAMIDE [Concomitant]
     Route: 065
  13. EFFEXOR [Concomitant]
     Route: 065
  14. RISPERDAL [Concomitant]
     Route: 065
  15. DIAZEPAM [Concomitant]
     Route: 065
  16. HYDROCODONE HYDROCHLORIDE [Concomitant]
     Route: 065
  17. FLOXIN [Concomitant]
     Route: 065
  18. ACTONEL [Concomitant]
     Route: 065
  19. GUAIFENESIN [Concomitant]
     Route: 065

REACTIONS (2)
  - CEREBROVASCULAR ACCIDENT [None]
  - MYOCARDIAL INFARCTION [None]
